FAERS Safety Report 5123276-4 (Version None)
Quarter: 2006Q4

REPORT INFORMATION
  Report Type: 
  Country: None (occurrence: None)
  Receive Date: 20061009
  Receipt Date: 20060914
  Transmission Date: 20070319
  Serious: Yes (Life-Threatening, Hospitalization)
  Sender: FDA-Public Use
  Company Number: JP-GLAXOSMITHKLINE-B0438314A

PATIENT
  Age: 4 Year
  Sex: Male

DRUGS (4)
  1. FLOLAN [Suspect]
     Indication: PULMONARY HYPERTENSION
     Route: 042
     Dates: start: 20060301
  2. WARFARIN SODIUM [Suspect]
     Dosage: 1.1MG PER DAY
     Route: 048
     Dates: start: 20051003
  3. TRACLEER [Suspect]
     Dosage: 12.5MG TWICE PER DAY
     Route: 048
     Dates: start: 20051019
  4. VIAGRA [Suspect]
     Dosage: 6.25MG FOUR TIMES PER DAY
     Route: 048
     Dates: start: 20060123

REACTIONS (2)
  - HAEMOPTYSIS [None]
  - PULMONARY HAEMORRHAGE [None]
